FAERS Safety Report 24069585 (Version 1)
Quarter: 2024Q3

REPORT INFORMATION
  Report Type: Report from Study
  Country: CN (occurrence: CN)
  Receive Date: 20240710
  Receipt Date: 20240710
  Transmission Date: 20241017
  Serious: No
  Sender: ROCHE
  Company Number: CN-ROCHE-3050416

PATIENT
  Age: 42 Year
  Sex: Female
  Weight: 71.5 kg

DRUGS (11)
  1. ALECTINIB [Suspect]
     Active Substance: ALECTINIB
     Indication: Non-small cell lung cancer
     Route: 048
     Dates: start: 20201001
  2. ALECTINIB [Suspect]
     Active Substance: ALECTINIB
     Route: 048
     Dates: start: 20210910
  3. URSODIOL [Concomitant]
     Active Substance: URSODIOL
     Route: 048
     Dates: start: 20210908
  4. URSODIOL [Concomitant]
     Active Substance: URSODIOL
     Route: 048
     Dates: start: 20230611
  5. MAGNESIUM ISOGLYCYRRHIZINATE [Concomitant]
     Active Substance: MAGNESIUM ISOGLYCYRRHIZINATE
     Indication: Aspartate aminotransferase increased
     Route: 050
     Dates: start: 20220427, end: 20220428
  6. MAGNESIUM ISOGLYCYRRHIZINATE [Concomitant]
     Active Substance: MAGNESIUM ISOGLYCYRRHIZINATE
     Indication: Alanine aminotransferase increased
     Route: 050
     Dates: start: 20220428, end: 20220429
  7. MAGNESIUM ISOGLYCYRRHIZINATE [Concomitant]
     Active Substance: MAGNESIUM ISOGLYCYRRHIZINATE
     Route: 050
     Dates: start: 20220928, end: 20220928
  8. CEFDINIR [Concomitant]
     Active Substance: CEFDINIR
     Route: 048
     Dates: start: 20220818, end: 20220820
  9. SOPHORA FLAVESCENS [Concomitant]
     Route: 050
     Dates: start: 20220815, end: 20220819
  10. FLUCONAZOLE [Concomitant]
     Active Substance: FLUCONAZOLE
     Route: 048
     Dates: start: 20230108, end: 202302
  11. ACETYLCYSTEINE [Concomitant]
     Active Substance: ACETYLCYSTEINE
     Route: 048
     Dates: start: 20230108

REACTIONS (1)
  - Hepatic steatosis [Not Recovered/Not Resolved]

NARRATIVE: CASE EVENT DATE: 20220107
